FAERS Safety Report 10757444 (Version 4)
Quarter: 2015Q2

REPORT INFORMATION
  Report Type: Spontaneous
  Country: CA (occurrence: None)
  Receive Date: 20150130
  Receipt Date: 20150519
  Transmission Date: 20150821
  Serious: Yes (Hospitalization, Other)
  Sender: FDA-Public Use
  Company Number: CA-2013VAL000325

PATIENT
  Age: 76 Year
  Sex: Male

DRUGS (8)
  1. TASIGNA [Suspect]
     Active Substance: NILOTINIB
     Indication: CHRONIC MYELOID LEUKAEMIA
     Route: 048
     Dates: start: 20120307
  2. COUMADIN [Suspect]
     Active Substance: WARFARIN SODIUM
     Indication: BLOOD VISCOSITY INCREASED
  3. PANTOLOC (PANTOPRAZOLE SODIUM SESQUIHYDRATE) [Concomitant]
  4. CRESTOR [Concomitant]
     Active Substance: ROSUVASTATIN CALCIUM
  5. COUMADIN [Suspect]
     Active Substance: WARFARIN SODIUM
     Indication: ATRIAL FIBRILLATION
  6. ASPIRIN. [Concomitant]
     Active Substance: ASPIRIN
  7. LOPRESSOR [Suspect]
     Active Substance: METOPROLOL TARTRATE
     Indication: ATRIAL FIBRILLATION
     Dosage: 50 MG IN MORNING, 25 MG AT NIGHT, ORAL
     Route: 048
  8. XARELTO [Concomitant]
     Active Substance: RIVAROXABAN

REACTIONS (19)
  - Glucose tolerance impaired [None]
  - International normalised ratio increased [None]
  - Ocular hyperaemia [None]
  - Coronary artery occlusion [None]
  - Cataract [None]
  - Diarrhoea [None]
  - Malaise [None]
  - Nasopharyngitis [None]
  - Cough [None]
  - Body temperature increased [None]
  - Eye pruritus [None]
  - Pruritus [None]
  - Heart rate increased [None]
  - Musculoskeletal stiffness [None]
  - Dyspepsia [None]
  - Acne [None]
  - Fatigue [None]
  - Weight decreased [None]
  - Hypotension [None]

NARRATIVE: CASE EVENT DATE: 201203
